FAERS Safety Report 6857413-8 (Version None)
Quarter: 2010Q3

REPORT INFORMATION
  Report Type: 
  Country: None (occurrence: None)
  Receive Date: 20100719
  Receipt Date: 20080124
  Transmission Date: 20110219
  Serious: No
  Sender: FDA-Public Use
  Company Number: US-PFIZER INC-2008008729

PATIENT
  Sex: Female
  Weight: 65.9 kg

DRUGS (8)
  1. CHANTIX [Suspect]
     Indication: SMOKING CESSATION THERAPY
     Dates: start: 20080110
  2. BENICAR [Concomitant]
  3. ACETYLSALICYLIC ACID [Concomitant]
  4. CRESTOR [Concomitant]
  5. PROTONIX [Concomitant]
  6. WELLBUTRIN [Concomitant]
  7. MULTI-VITAMINS [Concomitant]
  8. CALCIUM [Concomitant]

REACTIONS (2)
  - NAUSEA [None]
  - VOMITING [None]
